FAERS Safety Report 7085254-8 (Version None)
Quarter: 2010Q4

REPORT INFORMATION
  Report Type: 
  Country: None (occurrence: None)
  Receive Date: 20101105
  Receipt Date: 20101101
  Transmission Date: 20110411
  Serious: Yes (Other)
  Sender: FDA-Public Use
  Company Number: US-TEVA-253628USA

PATIENT
  Age: 32 Year
  Sex: Male

DRUGS (1)
  1. AMPHETAMINES [Suspect]

REACTIONS (2)
  - FEELING ABNORMAL [None]
  - SUICIDE ATTEMPT [None]
